FAERS Safety Report 7237306-7 (Version None)
Quarter: 2011Q1

REPORT INFORMATION
  Report Type: 
  Country: None (occurrence: None)
  Receive Date: 20110121
  Receipt Date: 20110111
  Transmission Date: 20110831
  Serious: Yes (Hospitalization)
  Sender: FDA-Public Use
  Company Number: FR-JNJFOC-20040703149

PATIENT
  Age: 10 Year
  Sex: Female

DRUGS (4)
  1. OXATOMIDE [Concomitant]
  2. CHILDREN'S IBUPROFEN [Suspect]
     Indication: PYREXIA
     Dosage: ^USUAL DOSES^
  3. CHILDREN'S IBUPROFEN [Suspect]
     Indication: PHARYNGITIS
     Dosage: ^USUAL DOSES^
  4. BETAMETHASONE [Concomitant]

REACTIONS (2)
  - VANISHING BILE DUCT SYNDROME [None]
  - STEVENS-JOHNSON SYNDROME [None]
